FAERS Safety Report 21955614 (Version 1)
Quarter: 2023Q1

REPORT INFORMATION
  Report Type: Spontaneous
  Country: US (occurrence: US)
  Receive Date: 20230206
  Receipt Date: 20230206
  Transmission Date: 20230417
  Serious: No
  Sender: FDA-Public Use
  Company Number: US-AMGEN-USASP2022228558

PATIENT
  Sex: Female

DRUGS (8)
  1. ENBREL [Suspect]
     Active Substance: ETANERCEPT
     Indication: Psoriatic arthropathy
     Dosage: 50 MILLIGRAM, QWK
     Route: 058
     Dates: start: 20220901
  2. ALENDRONATE [Concomitant]
     Active Substance: ALENDRONATE SODIUM
     Dosage: 70 MILLIGRAM
  3. CALCIUM\VITAMIN D [Concomitant]
     Active Substance: CALCIUM\VITAMIN D
     Dosage: 500-1000M
  4. HYDROCODONE [Concomitant]
     Active Substance: HYDROCODONE
     Dosage: 325 MILLIGRAM
  5. LIDOCAINE [Concomitant]
     Active Substance: LIDOCAINE
     Dosage: 5 PERCENT
  6. ONE-A-DAY NOS [Concomitant]
     Active Substance: MINERALS\VITAMINS
     Dosage: UNK
  7. SOMBRA COOL THERAPY [Concomitant]
     Active Substance: MENTHOL
     Dosage: 6 PERCENT
  8. TYLENOL PM [Concomitant]
     Active Substance: ACETAMINOPHEN\DIPHENHYDRAMINE
     Dosage: 500-25MG, BD PEN MINIM MIS

REACTIONS (5)
  - Pain [Not Recovered/Not Resolved]
  - Back pain [Not Recovered/Not Resolved]
  - Decreased appetite [Not Recovered/Not Resolved]
  - Abdominal pain upper [Not Recovered/Not Resolved]
  - Illness [Not Recovered/Not Resolved]
